FAERS Safety Report 6006867-8 (Version None)
Quarter: 2008Q4

REPORT INFORMATION
  Report Type: 
  Country: None (occurrence: None)
  Receive Date: 20081217
  Receipt Date: 20071112
  Transmission Date: 20090506
  Serious: No
  Sender: FDA-Public Use
  Company Number: US-ASTRAZENECA-2007UW26181

PATIENT
  Age: 87 Year
  Sex: Female
  Weight: 59 kg

DRUGS (5)
  1. CRESTOR [Suspect]
     Indication: BLOOD CHOLESTEROL
  2. NEXIUM [Concomitant]
  3. HYDROCHLOROTHIAZIDE [Concomitant]
  4. MIACALCIN [Concomitant]
  5. ASPIRIN [Concomitant]

REACTIONS (1)
  - VISUAL IMPAIRMENT [None]
